FAERS Safety Report 7551938-8 (Version None)
Quarter: 2011Q2

REPORT INFORMATION
  Report Type: 
  Country: None (occurrence: None)
  Receive Date: 20110616
  Receipt Date: 20110531
  Transmission Date: 20111010
  Serious: Yes (Life-Threatening)
  Sender: FDA-Public Use
  Company Number: US-BAYER-2011-002775

PATIENT
  Age: 35 Year
  Sex: Female
  Weight: 143.31 kg

DRUGS (9)
  1. YAZ [Suspect]
     Indication: DYSMENORRHOEA
     Dosage: UNK
     Dates: start: 20060831, end: 20061122
  2. YAZ [Suspect]
     Indication: PREMENSTRUAL SYNDROME
  3. METFORMIN HCL [Concomitant]
     Route: 048
  4. YASMIN [Suspect]
     Indication: PREMENSTRUAL SYNDROME
  5. MEPERIDINE/PROMETHAZINE [Concomitant]
     Route: 048
  6. CYCLOBENZAPRINE [Concomitant]
     Dosage: 10 MG, UNK
     Route: 048
  7. HYDROCODONE BITARTRATE AND ACETAMINOPHEN [Concomitant]
     Dosage: UNK MG, UNK
     Route: 048
  8. HYDROCODONE BITARTRATE AND ACETAMINOPHEN [Concomitant]
     Dosage: UNK
  9. YASMIN [Suspect]
     Indication: DYSMENORRHOEA
     Dosage: UNK
     Dates: start: 20070213, end: 20080116

REACTIONS (8)
  - DEEP VEIN THROMBOSIS [None]
  - DEFORMITY [None]
  - ANGIOPATHY [None]
  - FATIGUE [None]
  - EMOTIONAL DISTRESS [None]
  - ASTHENIA [None]
  - ANXIETY [None]
  - PAIN [None]
